FAERS Safety Report 10483366 (Version 1)
Quarter: 2014Q3

REPORT INFORMATION
  Report Type: Spontaneous
  Country: US (occurrence: None)
  Receive Date: 20140908
  Receipt Date: 20140908
  Transmission Date: 20150326
  Serious: Yes (Other)
  Sender: FDA-Public Use
  Company Number: 395335

PATIENT
  Age: 45 Year
  Sex: Female
  Weight: 122.4 kg

DRUGS (7)
  1. DHEA (PASTERONE) [Concomitant]
  2. GLUMETZA (METFORMIN HYDROCLORIDE) [Concomitant]
  3. REPLAX (ELETRIPTAN HYDROBROMIDE) [Concomitant]
  4. CELEXA [Concomitant]
     Active Substance: CITALOPRAM HYDROBROMIDE
  5. VITAMIN D3 [Concomitant]
     Active Substance: CHOLECALCIFEROL
  6. SYNTHROID [Concomitant]
     Active Substance: LEVOTHYROXINE SODIUM
  7. VICTOZA [Suspect]
     Active Substance: LIRAGLUTIDE
     Indication: TYPE 2 DIABETES MELLITUS
     Route: 058
     Dates: start: 20131011

REACTIONS (3)
  - Dizziness [None]
  - Pancreatitis [None]
  - Confusional state [None]

NARRATIVE: CASE EVENT DATE: 20131101
